FAERS Safety Report 5657471-2 (Version None)
Quarter: 2008Q1

REPORT INFORMATION
  Report Type: 
  Country: None (occurrence: None)
  Receive Date: 20080310
  Receipt Date: 20080227
  Transmission Date: 20080703
  Serious: Yes (Hospitalization, Other)
  Sender: FDA-Public Use
  Company Number: US-PFIZER INC-2008019108

PATIENT
  Sex: Male
  Weight: 84.09 kg

DRUGS (6)
  1. NEURONTIN [Suspect]
     Indication: CONVULSION
     Dates: start: 19880101, end: 20080101
  2. LYRICA [Suspect]
     Indication: CONVULSION
  3. LIPITOR [Concomitant]
  4. PHENOBARBITAL TAB [Concomitant]
  5. ANTI-SMOKING AGENTS [Concomitant]
     Indication: SMOKING CESSATION THERAPY
  6. VESICARE [Concomitant]

REACTIONS (3)
  - CONVULSION [None]
  - DRUG DOSE OMISSION [None]
  - EPISTAXIS [None]
